FAERS Safety Report 7492506-6 (Version None)
Quarter: 2011Q2

REPORT INFORMATION
  Report Type: 
  Country: None (occurrence: None)
  Receive Date: 20110519
  Receipt Date: 20110510
  Transmission Date: 20111010
  Serious: Yes (Death, Hospitalization, Other)
  Sender: FDA-Public Use
  Company Number: GB-PFIZER INC-2011088749

PATIENT
  Age: 19 Year
  Sex: Female

DRUGS (5)
  1. SILDENAFIL CITRATE [Suspect]
     Indication: PULMONARY ARTERIAL HYPERTENSION
     Dosage: 50 MG, 3X/DAY
  2. OMEPRAZOLE [Suspect]
     Indication: ILL-DEFINED DISORDER
     Dosage: UNK
  3. AMOXICILLIN [Suspect]
     Indication: EAR INFECTION
     Dosage: UNK
  4. DOMPERIDONE [Suspect]
     Dosage: UNK
  5. SITAXENTAN [Suspect]
     Indication: PULMONARY ARTERIAL HYPERTENSION
     Dosage: 100 MG, DAILY

REACTIONS (5)
  - ACUTE HEPATIC FAILURE [None]
  - JAUNDICE [None]
  - BRAIN OEDEMA [None]
  - COAGULOPATHY [None]
  - LIVER FUNCTION TEST ABNORMAL [None]
